FAERS Safety Report 4868035-2 (Version None)
Quarter: 2005Q4

REPORT INFORMATION
  Report Type: 
  Country: None (occurrence: None)
  Receive Date: 20051223
  Receipt Date: 20051223
  Transmission Date: 20060501
  Serious: Yes (Hospitalization, Other)
  Sender: FDA-Public Use
  Company Number: None

PATIENT
  Sex: Female
  Weight: 68.64 kg

DRUGS (7)
  1. SANDOSTATIN LAR [Suspect]
     Indication: NEOPLASM
     Dosage: SEE IMAGE
     Route: 058
     Dates: start: 20051117, end: 20051123
  2. SANDOSTATIN LAR [Suspect]
     Indication: NEOPLASM
     Dosage: SEE IMAGE
     Route: 058
     Dates: start: 20051123
  3. PLACEBO [Suspect]
     Dosage: SEE IMAGE
  4. NORVASC [Concomitant]
  5. ASPIRIN [Concomitant]
  6. DETROL [Concomitant]
  7. DIAZIDE [Concomitant]

REACTIONS (10)
  - ABDOMINAL DISTENSION [None]
  - ABDOMINAL PAIN [None]
  - BLOOD POTASSIUM DECREASED [None]
  - BLOOD UREA INCREASED [None]
  - DEHYDRATION [None]
  - DIARRHOEA [None]
  - GALLBLADDER DISORDER [None]
  - NAUSEA [None]
  - SMALL INTESTINAL OBSTRUCTION [None]
  - VOMITING [None]
